FAERS Safety Report 10092183 (Version 1)
Quarter: 2014Q2

REPORT INFORMATION
  Report Type: Spontaneous
  Country: US (occurrence: US)
  Receive Date: 20140421
  Receipt Date: 20140421
  Transmission Date: 20141212
  Serious: No
  Sender: FDA-Public Use
  Company Number: US-SANOFI-AVENTIS-2013SA027618

PATIENT
  Age: 79 Year
  Sex: Male

DRUGS (2)
  1. ALLEGRA [Suspect]
     Indication: ARTHROPOD BITE
     Dosage: TAKEN AT 4:00-5:00 PM
     Route: 048
     Dates: start: 20130313, end: 20130313
  2. ALL OTHER THERAPEUTIC PRODUCTS [Concomitant]

REACTIONS (4)
  - Feeling abnormal [Not Recovered/Not Resolved]
  - Dizziness [Not Recovered/Not Resolved]
  - Somnolence [Not Recovered/Not Resolved]
  - Fatigue [Not Recovered/Not Resolved]
